FAERS Safety Report 20244210 (Version 2)
Quarter: 2022Q4

REPORT INFORMATION
  Report Type: Spontaneous
  Country: CH (occurrence: CH)
  Receive Date: 20211229
  Receipt Date: 20221012
  Transmission Date: 20230113
  Serious: Yes (Life-Threatening, Hospitalization, Other)
  Sender: FDA-Public Use
  Company Number: CH-BoehringerIngelheim-2021-BI-145671

PATIENT
  Age: 63 Year
  Sex: Male

DRUGS (50)
  1. CLONIDINE [Suspect]
     Active Substance: CLONIDINE
     Indication: Product used for unknown indication
     Dosage: AS NECESSARY
     Dates: start: 20211105, end: 20211106
  2. TRAMADOL [Suspect]
     Active Substance: TRAMADOL
     Indication: Procedural pain
     Dates: start: 20211114, end: 20211116
  3. TRAMADOL [Suspect]
     Active Substance: TRAMADOL
     Dates: start: 20211117, end: 20211201
  4. TRAMADOL [Suspect]
     Active Substance: TRAMADOL
     Dosage: AS NECESSARY
     Dates: start: 20211112, end: 20220224
  5. CLOMETHIAZOLE [Suspect]
     Active Substance: CLOMETHIAZOLE
     Indication: Product used for unknown indication
     Dates: start: 20211110, end: 20211110
  6. CLOMETHIAZOLE [Suspect]
     Active Substance: CLOMETHIAZOLE
     Dosage: 192 MG 4X/J ?AS ?NECESSARY
     Dates: start: 20211113, end: 20211204
  7. CLOMETHIAZOLE [Suspect]
     Active Substance: CLOMETHIAZOLE
     Dates: start: 20211115, end: 20211216
  8. QUETIAPINE [Suspect]
     Active Substance: QUETIAPINE
     Indication: Product used for unknown indication
     Dates: start: 20211114, end: 20211115
  9. QUETIAPINE [Suspect]
     Active Substance: QUETIAPINE
     Dates: start: 20211116, end: 20211202
  10. CORDARONE [Suspect]
     Active Substance: AMIODARONE HYDROCHLORIDE
     Indication: Atrial fibrillation
     Dates: start: 20211104, end: 20211104
  11. CORDARONE [Suspect]
     Active Substance: AMIODARONE HYDROCHLORIDE
     Dates: start: 20211109, end: 20211122
  12. CORDARONE [Suspect]
     Active Substance: AMIODARONE HYDROCHLORIDE
     Dates: start: 20211123, end: 20220130
  13. MORPHINE [Suspect]
     Active Substance: MORPHINE
     Indication: Product used for unknown indication
     Dates: start: 20211105, end: 20211105
  14. LORAZEPAM [Suspect]
     Active Substance: LORAZEPAM
     Indication: Product used for unknown indication
     Dosage: AS NECESSARY
     Dates: start: 20211114, end: 20211118
  15. LORAZEPAM [Suspect]
     Active Substance: LORAZEPAM
     Dosage: AS NECESSARY
     Dates: start: 20211119, end: 20211123
  16. LORAZEPAM [Suspect]
     Active Substance: LORAZEPAM
     Dosage: AS NECESSARY
     Dates: start: 20220217
  17. ATARAX [Suspect]
     Active Substance: HYDROXYZINE HYDROCHLORIDE
     Indication: Product used for unknown indication
     Dates: start: 20211110, end: 20211110
  18. ATARAX [Suspect]
     Active Substance: HYDROXYZINE HYDROCHLORIDE
     Dates: start: 20211111, end: 20211112
  19. OXAZEPAM [Suspect]
     Active Substance: OXAZEPAM
     Indication: Product used for unknown indication
     Dates: start: 20211113, end: 20211114
  20. ALDACTONE [Concomitant]
     Active Substance: SPIRONOLACTONE
     Indication: Product used for unknown indication
     Route: 048
     Dates: start: 20211109
  21. Clexane Enoxaparin sodium [Concomitant]
     Indication: Product used for unknown indication
     Dosage: AS NECESSARY
     Dates: start: 20211111
  22. EZETIMIBE [Concomitant]
     Active Substance: EZETIMIBE
     Indication: Product used for unknown indication
     Route: 048
     Dates: start: 20211111
  23. LEVETIRACETAM [Concomitant]
     Active Substance: LEVETIRACETAM
     Indication: Product used for unknown indication
     Route: 048
     Dates: start: 20211107
  24. ASPIRIN DL-LYSINE [Concomitant]
     Active Substance: ASPIRIN DL-LYSINE
     Indication: Product used for unknown indication
     Route: 048
     Dates: start: 20211117
  25. MOVICOL [Concomitant]
     Active Substance: POLYETHYLENE GLYCOL 3350\POTASSIUM CHLORIDE\SODIUM BICARBONATE\SODIUM CHLORIDE
     Indication: Product used for unknown indication
     Route: 048
     Dates: start: 20211112
  26. DAFALGAN [Concomitant]
     Active Substance: ACETAMINOPHEN
     Indication: Product used for unknown indication
     Route: 048
     Dates: start: 20211112
  27. PERINDOPRIL [Concomitant]
     Active Substance: PERINDOPRIL
     Indication: Product used for unknown indication
     Route: 048
     Dates: start: 20211112
  28. SODIUM PICOSULFATE [Concomitant]
     Active Substance: SODIUM PICOSULFATE
     Indication: Product used for unknown indication
     Route: 048
  29. CRESTOR [Concomitant]
     Active Substance: ROSUVASTATIN CALCIUM
     Indication: Product used for unknown indication
     Route: 048
     Dates: start: 20211104
  30. NOVASOURCE GI CONTROL [Concomitant]
     Indication: Product used for unknown indication
     Dates: start: 20211105
  31. NOVORAPID [Concomitant]
     Active Substance: INSULIN ASPART
     Indication: Product used for unknown indication
     Route: 058
  32. FREKA-CLYSS [Concomitant]
     Indication: Product used for unknown indication
     Dosage: AS NECESSARY
     Route: 054
  33. AMOXICILLIN\CLAVULANIC ACID [Concomitant]
     Active Substance: AMOXICILLIN\CLAVULANIC ACID
     Indication: Product used for unknown indication
     Dates: start: 20211104, end: 20211105
  34. MOMETASONE [Concomitant]
     Active Substance: MOMETASONE
     Route: 042
     Dates: start: 20211104, end: 20211105
  35. DEXAMETHASONE [Concomitant]
     Active Substance: DEXAMETHASONE
     Indication: Product used for unknown indication
     Dates: start: 20211105, end: 20211107
  36. ACETAMINOPHEN [Concomitant]
     Active Substance: ACETAMINOPHEN
     Indication: Product used for unknown indication
     Route: 042
     Dates: start: 20211104, end: 20211105
  37. ACETAMINOPHEN [Concomitant]
     Active Substance: ACETAMINOPHEN
     Route: 048
     Dates: start: 20211105, end: 20211107
  38. SODIUM PHOSPHATE [Concomitant]
     Active Substance: SODIUM PHOSPHATE
     Indication: Product used for unknown indication
     Route: 054
     Dates: start: 20211104, end: 20211107
  39. PIPERACILLIN AND TAZOBACTAM [Concomitant]
     Active Substance: PIPERACILLIN SODIUM\TAZOBACTAM SODIUM
     Indication: Product used for unknown indication
     Dates: start: 20211106, end: 20211107
  40. METOPROLOL [Concomitant]
     Active Substance: METOPROLOL
     Indication: Product used for unknown indication
     Route: 042
     Dates: start: 20211104, end: 20211104
  41. METOPROLOL [Concomitant]
     Active Substance: METOPROLOL
     Dates: start: 20211108, end: 20211108
  42. Empagliflozin; Metformin [Concomitant]
     Indication: Product used for unknown indication
     Dates: start: 20211105, end: 20211107
  43. ASPIRIN [Concomitant]
     Active Substance: ASPIRIN
     Indication: Product used for unknown indication
     Dates: start: 20211112, end: 20211116
  44. MOXONIDINE [Concomitant]
     Active Substance: MOXONIDINE
     Indication: Product used for unknown indication
     Dates: start: 20211109, end: 20211110
  45. MOXONIDINE [Concomitant]
     Active Substance: MOXONIDINE
     Dates: start: 20211111, end: 20211111
  46. MELATONIN [Concomitant]
     Active Substance: MELATONIN
     Indication: Product used for unknown indication
     Dates: start: 20211113, end: 20211115
  47. POTASSIUM CITRATE [Concomitant]
     Active Substance: POTASSIUM CITRATE
     Indication: Product used for unknown indication
     Dates: start: 20211114, end: 20211116
  48. MIDAZOLAM [Concomitant]
     Active Substance: MIDAZOLAM
     Indication: Psychomotor hyperactivity
     Dates: start: 20211114, end: 20211115
  49. AMLODIPINE [Concomitant]
     Active Substance: AMLODIPINE BESYLATE
     Indication: Product used for unknown indication
     Dosage: AS NECESSARY
     Route: 048
     Dates: start: 20211106
  50. AMLODIPINE [Concomitant]
     Active Substance: AMLODIPINE BESYLATE
     Route: 048
     Dates: start: 20211109

REACTIONS (5)
  - Respiratory failure [Recovered/Resolved]
  - Depressed level of consciousness [Recovered/Resolved]
  - Confusional state [Recovered/Resolved]
  - Trismus [Recovered/Resolved]
  - Drug interaction [Recovered/Resolved]

NARRATIVE: CASE EVENT DATE: 20211101
